FAERS Safety Report 16699239 (Version 1)
Quarter: 2019Q3

REPORT INFORMATION
  Report Type: Spontaneous
  Country: IT (occurrence: IT)
  Receive Date: 20190813
  Receipt Date: 20190813
  Transmission Date: 20191004
  Serious: Yes (Hospitalization)
  Sender: FDA-Public Use
  Company Number: IT-TEVA-2019-IT-1090743

PATIENT
  Age: 80 Year
  Sex: Female

DRUGS (3)
  1. LANSOPRAZOLE. [Suspect]
     Active Substance: LANSOPRAZOLE
     Route: 065
  2. AMIODARONE [Interacting]
     Active Substance: AMIODARONE
     Route: 065
  3. WARFARIN [Interacting]
     Active Substance: WARFARIN
     Indication: ATRIAL FIBRILLATION
     Route: 048

REACTIONS (4)
  - Subdural haemorrhage [Recovering/Resolving]
  - Coagulation test abnormal [Recovering/Resolving]
  - Aphasia [Recovering/Resolving]
  - Labelled drug-drug interaction medication error [Unknown]
